FAERS Safety Report 5148781-6 (Version None)
Quarter: 2006Q4

REPORT INFORMATION
  Report Type: 
  Country: None (occurrence: None)
  Receive Date: 20061107
  Receipt Date: 20061101
  Transmission Date: 20070319
  Serious: No
  Sender: FDA-Public Use
  Company Number: TAP2006Q01724

PATIENT
  Age: 20 Month
  Sex: Male
  Weight: 20.45 kg

DRUGS (3)
  1. PREVACID [Suspect]
     Indication: GASTROOESOPHAGEAL REFLUX DISEASE
     Dosage: 2.5 MG, 1 IN 1 D, PER ORAL
     Route: 048
     Dates: start: 20030421, end: 20060221
  2. PREVACID [Suspect]
     Indication: GASTROOESOPHAGEAL REFLUX DISEASE
     Dosage: 15 MG, 1 IN 1 D, PER ORAL
     Route: 048
     Dates: start: 20060222, end: 20060622
  3. SINGULAIR [Concomitant]

REACTIONS (4)
  - PHOTOPHOBIA [None]
  - PIGMENTATION DISORDER [None]
  - RETINAL DYSTROPHY [None]
  - RETINOGRAM ABNORMAL [None]
